FAERS Safety Report 25652306 (Version 1)
Quarter: 2025Q3

REPORT INFORMATION
  Report Type: Spontaneous
  Country: US (occurrence: US)
  Receive Date: 20250807
  Receipt Date: 20250807
  Transmission Date: 20251021
  Serious: Yes (Death, Hospitalization, Other)
  Sender: NOVO NORDISK
  Company Number: US-NOVOPROD-1492660

PATIENT
  Age: 78 Year
  Sex: Male

DRUGS (1)
  1. VICTOZA [Suspect]
     Active Substance: LIRAGLUTIDE
     Indication: Type 2 diabetes mellitus
     Dosage: 1.8 MG, QD
     Route: 058

REACTIONS (7)
  - Respiratory failure [Fatal]
  - Sepsis [Fatal]
  - Encephalopathy [Fatal]
  - Gangrene [Unknown]
  - COVID-19 [Unknown]
  - Ischaemia [Not Recovered/Not Resolved]
  - Renal disorder [Unknown]

NARRATIVE: CASE EVENT DATE: 20250101
